FAERS Safety Report 5482969-X (Version None)
Quarter: 2007Q4

REPORT INFORMATION
  Report Type: 
  Country: None (occurrence: None)
  Receive Date: 20071005
  Receipt Date: 20070920
  Transmission Date: 20080405
  Serious: Yes (Other)
  Sender: FDA-Public Use
  Company Number: 8027180

PATIENT
  Sex: Male

DRUGS (1)
  1. LEVETIRACETAM [Suspect]

REACTIONS (2)
  - ABORTION SPONTANEOUS [None]
  - TRANSMISSION OF DRUG VIA SEMEN [None]
